FAERS Safety Report 25928142 (Version 2)
Quarter: 2025Q4

REPORT INFORMATION
  Report Type: Spontaneous
  Country: US (occurrence: US)
  Receive Date: 20251016
  Receipt Date: 20251120
  Transmission Date: 20260117
  Serious: No
  Sender: TOLMAR
  Company Number: US-Tolmar-TLM-2025-07339

PATIENT

DRUGS (2)
  1. ELIGARD [Suspect]
     Active Substance: LEUPROLIDE ACETATE
     Indication: Prostate cancer
     Dosage: NDC: 62935-461-50?SN: 1577083187844?GTIN: 00362935461500?EXPIRATION DATE: DEC-2026; NOV-2026; NOV-20
     Route: 065
  2. DEVICE [Suspect]
     Active Substance: DEVICE
     Indication: Prostate cancer
     Dosage: NDC: 62935-461-50?SN: 1577083187844?GTIN: 00362935461500?EXPIRATION DATE: DEC-2026; NOV-2026; NOV-20

REACTIONS (4)
  - Intercepted product preparation error [Unknown]
  - Product packaging quantity issue [Unknown]
  - Wrong technique in product usage process [Unknown]
  - Product quality issue [Unknown]
